FAERS Safety Report 9715720 (Version 2)
Quarter: 2013Q4

REPORT INFORMATION
  Report Type: Report from Study
  Country: ES (occurrence: ES)
  Receive Date: 20131127
  Receipt Date: 20131226
  Transmission Date: 20140711
  Serious: Yes (Other)
  Sender: FDA-Public Use
  Company Number: ES-ROCHE-1308629

PATIENT
  Sex: Female

DRUGS (4)
  1. PEG-INTERFERON ALFA 2A [Suspect]
     Indication: HEPATITIS C
     Route: 058
     Dates: start: 20120914, end: 20130819
  2. RIBAVIRIN [Suspect]
     Indication: HEPATITIS C
     Route: 048
     Dates: start: 20120914, end: 20130819
  3. RIBAVIRIN [Suspect]
     Route: 048
     Dates: start: 20120914, end: 20130819
  4. MK-3034 [Suspect]
     Indication: HEPATITIS C
     Dosage: 200 MG HARD CAPSULES
     Route: 048
     Dates: start: 20121016, end: 20130819

REACTIONS (2)
  - Pancytopenia [Recovering/Resolving]
  - Anaemia [Recovered/Resolved]
